FAERS Safety Report 7915510-X (Version None)
Quarter: 2011Q4

REPORT INFORMATION
  Report Type: 
  Country: None (occurrence: None)
  Receive Date: 20111115
  Receipt Date: 20111104
  Transmission Date: 20120403
  Serious: Yes (Other)
  Sender: FDA-Public Use
  Company Number: AU-JNJFOC-20111102649

PATIENT
  Age: 68 Year
  Sex: Male

DRUGS (4)
  1. FOLIC ACID [Concomitant]
  2. METHOTREXATE [Concomitant]
  3. ARAVA [Concomitant]
  4. REMICADE [Suspect]
     Indication: RHEUMATOID ARTHRITIS
     Route: 042

REACTIONS (3)
  - SQUAMOUS CELL CARCINOMA [None]
  - NEUTROPENIA [None]
  - ANAEMIA [None]
